FAERS Safety Report 6389999-4 (Version None)
Quarter: 2009Q4

REPORT INFORMATION
  Report Type: 
  Country: None (occurrence: None)
  Receive Date: 20091003
  Receipt Date: 20090923
  Transmission Date: 20100525
  Serious: Yes (Hospitalization, Other)
  Sender: FDA-Public Use
  Company Number: 2009006781

PATIENT
  Age: 52 Year
  Sex: Male
  Weight: 89.8122 kg

DRUGS (3)
  1. FENTORA [Suspect]
     Indication: BREAKTHROUGH PAIN
     Dosage: 800 MCG (800 MCG, 1 IN 1 AS REQUIRED), SUBLINGUAL
     Route: 060
     Dates: start: 20090601, end: 20090605
  2. OXYCODONE HYDROCHLORIDE [Concomitant]
  3. OXYCONTIN [Concomitant]

REACTIONS (7)
  - ALCOHOL USE [None]
  - CYANOSIS [None]
  - HYPOXIA [None]
  - INCORRECT ROUTE OF DRUG ADMINISTRATION [None]
  - MEDICATION ERROR [None]
  - RESPIRATORY DEPRESSION [None]
  - UNRESPONSIVE TO STIMULI [None]
